FAERS Safety Report 20095180 (Version 2)
Quarter: 2021Q4

REPORT INFORMATION
  Report Type: Spontaneous
  Country: JP (occurrence: JP)
  Receive Date: 20211122
  Receipt Date: 20211222
  Transmission Date: 20220303
  Serious: Yes (Hospitalization)
  Sender: FDA-Public Use
  Company Number: JP-002147023-NVSJ2021JP018429

PATIENT
  Age: 49 Year
  Sex: Female

DRUGS (2)
  1. XOLAIR [Suspect]
     Active Substance: OMALIZUMAB
     Indication: Asthma
     Route: 058
     Dates: start: 202104, end: 20211108
  2. XOLAIR [Suspect]
     Active Substance: OMALIZUMAB
     Dosage: SOLUTION FOR INJECTION IN PRE-FILLED SYRINGE
     Route: 058

REACTIONS (1)
  - Hypoaesthesia [Recovered/Resolved]

NARRATIVE: CASE EVENT DATE: 20211108
